FAERS Safety Report 9330025 (Version 2)
Quarter: 2013Q3

REPORT INFORMATION
  Report Type: Spontaneous
  Country: SE (occurrence: SE)
  Receive Date: 20130604
  Receipt Date: 20130826
  Transmission Date: 20140515
  Serious: Yes (Other)
  Sender: FDA-Public Use
  Company Number: SE-ACTAVIS-2013-10285

PATIENT
  Sex: Female

DRUGS (1)
  1. GABAPENTIN (UNKNOWN) [Suspect]
     Indication: ANALGESIC THERAPY
     Dosage: 900 MG, DAILY
     Route: 048

REACTIONS (2)
  - Muscle spasms [Unknown]
  - Tic [Unknown]
